FAERS Safety Report 8765643 (Version 1)
Quarter: 2012Q4

REPORT INFORMATION
  Report Type: 
  Country: BR (occurrence: BR)
  Receive Date: 20120903
  Receipt Date: 20120903
  Transmission Date: 20130627
  Serious: Yes (Other)
  Sender: FDA-Public Use
  Company Number: PHHY2012BR073694

PATIENT
  Age: 74 Year
  Sex: Male
  Weight: 75 kg

DRUGS (8)
  1. FORMOTEROL [Suspect]
     Dosage: 24 ug, daily
  2. BUDESONIDE [Concomitant]
     Dosage: 800 ug, daily
  3. TIOTROPIUM [Concomitant]
     Dosage: 5 ug, daily
  4. AAS [Concomitant]
     Dosage: 100 mg, daily
  5. CLOPIDOGREL BISULFATE [Concomitant]
     Dosage: 150 mg, daily
  6. LOSARTAN POTASSIUM [Concomitant]
     Dosage: 50 mg, daily
  7. LOVASTATIN [Concomitant]
     Dosage: 20 mg, daily
  8. DILTIAZEM HYDROCHLORIDE [Concomitant]
     Dosage: 180 mg, daily

REACTIONS (8)
  - Respiratory rate increased [Unknown]
  - Lung infection [Unknown]
  - Cough [Recovering/Resolving]
  - Sputum purulent [Recovering/Resolving]
  - Haemophilus infection [Unknown]
  - Lung infiltration [Unknown]
  - Dyspnoea [Recovering/Resolving]
  - Tachypnoea [None]
